FAERS Safety Report 13054144 (Version 1)
Quarter: 2016Q4

REPORT INFORMATION
  Report Type: Spontaneous
  Country: US (occurrence: US)
  Receive Date: 20161222
  Receipt Date: 20161222
  Transmission Date: 20170207
  Serious: Yes (Other)
  Sender: FDA-Public Use
  Company Number: None

PATIENT
  Age: 55 Year
  Sex: Male
  Weight: 76.5 kg

DRUGS (1)
  1. FENTANYL. [Suspect]
     Active Substance: FENTANYL
     Indication: PAIN
     Dosage: ?          OTHER FREQUENCY:TOPICALLY Q72H;?
     Route: 062
     Dates: start: 20161006, end: 20161222

REACTIONS (6)
  - Drug effect variable [None]
  - Withdrawal syndrome [None]
  - Tremor [None]
  - Nausea [None]
  - Hyperhidrosis [None]
  - Device issue [None]

NARRATIVE: CASE EVENT DATE: 20161220
